FAERS Safety Report 5256028-5 (Version None)
Quarter: 2007Q1

REPORT INFORMATION
  Report Type: 
  Country: None (occurrence: None)
  Receive Date: 20070301
  Receipt Date: 20070219
  Transmission Date: 20070707
  Serious: Yes (Hospitalization)
  Sender: FDA-Public Use
  Company Number: GXKR2007TW01819

PATIENT
  Age: 62 Year
  Sex: Female

DRUGS (4)
  1. RANITIDINE [Suspect]
     Indication: DUODENAL ULCER
     Dosage: 150 MG, BID, ORAL
     Route: 048
     Dates: start: 19990101, end: 19990123
  2. PRILOSEC [Concomitant]
  3. CLARITHROMYCIN [Concomitant]
  4. AMOXICILLIN [Concomitant]

REACTIONS (8)
  - ALANINE AMINOTRANSFERASE INCREASED [None]
  - ASPARTATE AMINOTRANSFERASE INCREASED [None]
  - BLOOD ALKALINE PHOSPHATASE INCREASED [None]
  - BLOOD BILIRUBIN INCREASED [None]
  - GAMMA-GLUTAMYLTRANSFERASE INCREASED [None]
  - LACRIMATION INCREASED [None]
  - SKIN ULCER [None]
  - STEVENS-JOHNSON SYNDROME [None]
